FAERS Safety Report 11933542 (Version 1)
Quarter: 2016Q1

REPORT INFORMATION
  Report Type: Spontaneous
  Country: US (occurrence: None)
  Receive Date: 20160120
  Receipt Date: 20160120
  Transmission Date: 20160526
  Serious: Yes (Hospitalization)
  Sender: FDA-Public Use
  Company Number: None

PATIENT
  Age: 65 Year
  Sex: Male
  Weight: 76.2 kg

DRUGS (8)
  1. RADIUM RA 223 DICHLORIDE [Suspect]
     Active Substance: RADIUM RA-223 DICHLORIDE
     Route: 042
     Dates: start: 20151104
  2. ENZALUTAMIDE [Suspect]
     Active Substance: ENZALUTAMIDE
     Indication: PROSTATE CANCER
     Dates: start: 20151029
  3. FENTANYL TRANSDERMAL SYSTEM [Concomitant]
     Active Substance: FENTANYL
  4. GABAPENTIN. [Concomitant]
     Active Substance: GABAPENTIN
  5. TAMSULOSIN [Concomitant]
     Active Substance: TAMSULOSIN
  6. IBUPROPHEN [Concomitant]
     Active Substance: IBUPROFEN
  7. NAPROSYN [Concomitant]
     Active Substance: NAPROXEN
  8. TRAMADOL. [Concomitant]
     Active Substance: TRAMADOL

REACTIONS (5)
  - Sepsis [None]
  - Acute kidney injury [None]
  - Enterovesical fistula [None]
  - Hypotension [None]
  - Anaemia [None]

NARRATIVE: CASE EVENT DATE: 20160104
